FAERS Safety Report 24858392 (Version 1)
Quarter: 2025Q1

REPORT INFORMATION
  Report Type: Spontaneous
  Country: CN (occurrence: CN)
  Receive Date: 20250117
  Receipt Date: 20250117
  Transmission Date: 20250408
  Serious: Yes (Other)
  Sender: ROCHE
  Company Number: CN-ROCHE-10000179625

PATIENT
  Age: 69 Year
  Sex: Female
  Weight: 75 kg

DRUGS (3)
  1. BEVACIZUMAB [Suspect]
     Active Substance: BEVACIZUMAB
     Indication: Fallopian tube cancer
     Route: 042
     Dates: start: 20241218, end: 20241218
  2. CARBOPLATIN [Suspect]
     Active Substance: CARBOPLATIN
     Indication: Fallopian tube cancer
     Route: 042
     Dates: start: 20241219, end: 20241219
  3. PACLITAXEL [Suspect]
     Active Substance: PACLITAXEL
     Indication: Fallopian tube cancer
     Route: 042
     Dates: start: 20241219, end: 20241219

REACTIONS (3)
  - Vomiting [Recovering/Resolving]
  - Myelosuppression [Recovering/Resolving]
  - Decreased appetite [Unknown]

NARRATIVE: CASE EVENT DATE: 20241226
